FAERS Safety Report 11757246 (Version 1)
Quarter: 2015Q4

REPORT INFORMATION
  Report Type: Spontaneous
  Country: CA (occurrence: None)
  Receive Date: 20151119
  Receipt Date: 20151119
  Transmission Date: 20160304
  Serious: Yes (Hospitalization)
  Sender: FDA-Public Use
  Company Number: None

PATIENT
  Age: 75 Year
  Sex: Male
  Weight: 106.2 kg

DRUGS (9)
  1. AMLODIPINE [Concomitant]
     Active Substance: AMLODIPINE BESYLATE
  2. NADOLOL. [Concomitant]
     Active Substance: NADOLOL
  3. RANITIDINE [Concomitant]
     Active Substance: RANITIDINE\RANITIDINE HYDROCHLORIDE
  4. NEXAVAR [Suspect]
     Active Substance: SORAFENIB
     Dates: end: 20151109
  5. RAMIPRIL. [Concomitant]
     Active Substance: RAMIPRIL
  6. LACTULOSE. [Concomitant]
     Active Substance: LACTULOSE
  7. METFORMIN [Concomitant]
     Active Substance: METFORMIN HYDROCHLORIDE
  8. SPIROALACTONE [Concomitant]
  9. EYEDROPS-COSOPTAND TRAVATAN [Concomitant]

REACTIONS (4)
  - Sinus tachycardia [None]
  - Melaena [None]
  - Beta haemolytic streptococcal infection [None]
  - Endocarditis [None]

NARRATIVE: CASE EVENT DATE: 20151110
